FAERS Safety Report 23028503 (Version 2)
Quarter: 2023Q4

REPORT INFORMATION
  Report Type: Spontaneous
  Country: US (occurrence: US)
  Receive Date: 20231004
  Receipt Date: 20231018
  Transmission Date: 20240110
  Serious: Yes (Death, Hospitalization)
  Sender: FDA-Public Use
  Company Number: US-RIGEL Pharmaceuticals, INC-2023OLU000059

PATIENT
  Age: 65 Year
  Sex: Female

DRUGS (1)
  1. REZLIDHIA [Suspect]
     Active Substance: OLUTASIDENIB
     Indication: Acute myeloid leukaemia
     Dosage: 150 MG, BID
     Route: 065
     Dates: start: 20230906, end: 202309

REACTIONS (2)
  - Death [Fatal]
  - Dependence on respirator [Not Recovered/Not Resolved]

NARRATIVE: CASE EVENT DATE: 20230901
